FAERS Safety Report 15540458 (Version 1)
Quarter: 2018Q4

REPORT INFORMATION
  Report Type: Spontaneous
  Country: US (occurrence: US)
  Receive Date: 20181023
  Receipt Date: 20181023
  Transmission Date: 20190205
  Serious: No
  Sender: FDA-Public Use
  Company Number: US-PFIZER INC-2018423965

PATIENT
  Age: 75 Year
  Sex: Female

DRUGS (3)
  1. SILDENAFIL CITRATE. [Suspect]
     Active Substance: SILDENAFIL CITRATE
     Dosage: UNK
  2. TYVASO [Suspect]
     Active Substance: TREPROSTINIL
     Dosage: 66 UG, 4X/DAY
     Route: 055
  3. TYVASO [Suspect]
     Active Substance: TREPROSTINIL
     Indication: PULMONARY ARTERIAL HYPERTENSION
     Dosage: 54 UG, 4X/DAY(9 BREATHS), FOUR TIMES A DAY (QID)
     Route: 055
     Dates: start: 20180608

REACTIONS (4)
  - Blood glucose increased [Unknown]
  - Off label use [Unknown]
  - Fluid retention [Not Recovered/Not Resolved]
  - Restlessness [Unknown]

NARRATIVE: CASE EVENT DATE: 2018
